FAERS Safety Report 24388635 (Version 4)
Quarter: 2025Q1

REPORT INFORMATION
  Report Type: Spontaneous
  Country: AT (occurrence: AT)
  Receive Date: 20241002
  Receipt Date: 20250110
  Transmission Date: 20250408
  Serious: Yes (Death, Hospitalization, Other)
  Sender: TAKEDA
  Company Number: AT-HIKMA PHARMACEUTICALS-AT-H14001-24-08734

PATIENT
  Age: 75 Year
  Sex: Male

DRUGS (22)
  1. VELCADE [Suspect]
     Active Substance: BORTEZOMIB
     Indication: Encephalomyelitis
  2. VELCADE [Suspect]
     Active Substance: BORTEZOMIB
     Indication: Immune-mediated neurological disorder
  3. HUMAN IMMUNOGLOBULIN G [Suspect]
     Active Substance: HUMAN IMMUNOGLOBULIN G
     Indication: Encephalomyelitis
  4. HUMAN IMMUNOGLOBULIN G [Suspect]
     Active Substance: HUMAN IMMUNOGLOBULIN G
     Indication: Immune-mediated neurological disorder
  5. METHOTREXATE [Suspect]
     Active Substance: METHOTREXATE
     Indication: Immune-mediated neurological disorder
  6. METHOTREXATE [Suspect]
     Active Substance: METHOTREXATE
     Indication: Encephalomyelitis
  7. DIAZEPAM [Suspect]
     Active Substance: DIAZEPAM
     Indication: Sedation
  8. CYCLOPHOSPHAMIDE [Suspect]
     Active Substance: CYCLOPHOSPHAMIDE
     Indication: Encephalomyelitis
  9. CYCLOPHOSPHAMIDE [Suspect]
     Active Substance: CYCLOPHOSPHAMIDE
     Indication: Immune-mediated neurological disorder
  10. ISOFLURANE [Suspect]
     Active Substance: ISOFLURANE
     Indication: Sedation
  11. DEXMEDETOMIDINE [Suspect]
     Active Substance: DEXMEDETOMIDINE
     Indication: Sedation
  12. PROPOFOL [Suspect]
     Active Substance: PROPOFOL
     Indication: Sedation
  13. SUFENTANIL [Suspect]
     Active Substance: SUFENTANIL
     Indication: Sedation
  14. METHYLPREDNISOLONE [Suspect]
     Active Substance: METHYLPREDNISOLONE
     Indication: Encephalomyelitis
  15. METHYLPREDNISOLONE [Suspect]
     Active Substance: METHYLPREDNISOLONE
     Indication: Immune-mediated neurological disorder
  16. TIAPRIDE [Concomitant]
     Active Substance: TIAPRIDE
     Indication: Encephalomyelitis
  17. TIAPRIDE [Concomitant]
     Active Substance: TIAPRIDE
     Indication: Immune-mediated neurological disorder
  18. DRONABINOL [Concomitant]
     Active Substance: DRONABINOL
     Indication: Immune-mediated neurological disorder
  19. DRONABINOL [Concomitant]
     Active Substance: DRONABINOL
     Indication: Encephalomyelitis
  20. BACLOFEN [Concomitant]
     Active Substance: BACLOFEN
     Indication: Encephalomyelitis
  21. BACLOFEN [Concomitant]
     Active Substance: BACLOFEN
     Indication: Immune-mediated neurological disorder
  22. TRYPTOPHAN [Concomitant]
     Active Substance: TRYPTOPHAN
     Indication: Immunoadsorption therapy

REACTIONS (5)
  - Autonomic nervous system imbalance [Fatal]
  - Rebound effect [Fatal]
  - Agitation [Fatal]
  - Drug ineffective [Fatal]
  - Off label use [Unknown]
